FAERS Safety Report 5280540-6 (Version None)
Quarter: 2007Q1

REPORT INFORMATION
  Report Type: 
  Country: None (occurrence: None)
  Receive Date: 20061229
  Receipt Date: 20061003
  Transmission Date: 20070707
  Serious: Yes (Other)
  Sender: FDA-Public Use
  Company Number: 2006UW16483

PATIENT
  Age: 76 Year
  Sex: Male
  Weight: 70.306 kg

DRUGS (10)
  1. CRESTOR [Suspect]
     Indication: BLOOD CHOLESTEROL INCREASED
     Dosage: 20 MG PO
     Route: 048
     Dates: start: 20060801, end: 20060801
  2. LISINOPRIL [Concomitant]
  3. AVAPRO [Concomitant]
  4. NEXIUM [Concomitant]
  5. DIGITEK [Concomitant]
  6. FORADIL /DK/ [Concomitant]
  7. VERAPAMIL [Concomitant]
  8. PULMICORT [Concomitant]
  9. ZETIA [Concomitant]
  10. SINGULAIR [Concomitant]

REACTIONS (4)
  - ABDOMINAL DISCOMFORT [None]
  - FLATULENCE [None]
  - GASTROINTESTINAL PAIN [None]
  - INTERNATIONAL NORMALISED RATIO INCREASED [None]
